FAERS Safety Report 16054264 (Version 1)
Quarter: 2019Q1

REPORT INFORMATION
  Report Type: Report from Study
  Country: None (occurrence: DE)
  Receive Date: 20190308
  Receipt Date: 20190308
  Transmission Date: 20190418
  Serious: Yes (Hospitalization)
  Sender: FDA-Public Use
  Company Number: DE-ABBVIE-19K-062-2668618-00

PATIENT
  Age: 67 Year
  Sex: Female

DRUGS (2)
  1. CHLOROQUINE PHOSPHATE\HYDROXYCHLOROQUINE SULFATE\QUINACRINE HYDROCHLORIDE [Suspect]
     Active Substance: CHLOROQUINE PHOSPHATE\HYDROXYCHLOROQUINE SULFATE\QUINACRINE HYDROCHLORIDE
     Indication: PRODUCT USED FOR UNKNOWN INDICATION
     Route: 065
  2. HUMIRA [Suspect]
     Active Substance: ADALIMUMAB
     Indication: PRODUCT USED FOR UNKNOWN INDICATION
     Route: 058

REACTIONS (1)
  - Foot deformity [Recovered/Resolved]

NARRATIVE: CASE EVENT DATE: 20181102
